FAERS Safety Report 15375131 (Version 1)
Quarter: 2018Q3

REPORT INFORMATION
  Report Type: Spontaneous
  Country: FR (occurrence: FR)
  Receive Date: 20180912
  Receipt Date: 20180912
  Transmission Date: 20181010
  Serious: Yes (Hospitalization)
  Sender: FDA-Public Use
  Company Number: FR-ALLERGAN-1844308US

PATIENT
  Age: 45 Year
  Sex: Female

DRUGS (2)
  1. ESCITALOPRAM OXALATE ? BP [Suspect]
     Active Substance: ESCITALOPRAM OXALATE
     Indication: INTENTIONAL OVERDOSE
     Dosage: UNK, UNKNOWN
     Route: 048
     Dates: start: 20180402, end: 20180402
  2. PRAZEPAM [Suspect]
     Active Substance: PRAZEPAM
     Indication: INTENTIONAL OVERDOSE
     Dosage: UNK, UNKNOWN
     Route: 048
     Dates: start: 20180402, end: 20180402

REACTIONS (4)
  - Poisoning deliberate [Recovered/Resolved]
  - Product use in unapproved indication [Unknown]
  - Somnolence [Recovered/Resolved]
  - Overdose [Unknown]

NARRATIVE: CASE EVENT DATE: 20180402
